FAERS Safety Report 21878377 (Version 1)
Quarter: 2023Q1

REPORT INFORMATION
  Report Type: Report from Study
  Country: PR (occurrence: PR)
  Receive Date: 20230118
  Receipt Date: 20230118
  Transmission Date: 20230418
  Serious: No
  Sender: FDA-Public Use
  Company Number: PR-ABBVIE-4274282

PATIENT
  Sex: Male
  Weight: 100.24 kg

DRUGS (1)
  1. VENCLEXTA [Suspect]
     Active Substance: VENETOCLAX
     Indication: Acute myeloid leukaemia
     Route: 048
     Dates: start: 20230111

REACTIONS (2)
  - Pigmentation disorder [Unknown]
  - Skin discolouration [Unknown]

NARRATIVE: CASE EVENT DATE: 20230115
